FAERS Safety Report 6020199-3 (Version None)
Quarter: 2008Q4

REPORT INFORMATION
  Report Type: 
  Country: None (occurrence: None)
  Receive Date: 20081223
  Receipt Date: 20081223
  Transmission Date: 20090506
  Serious: Yes (Disabling, Other)
  Sender: FDA-Public Use
  Company Number: None

PATIENT
  Sex: Male
  Weight: 110.2241 kg

DRUGS (2)
  1. ISOSORBIDE MONONITRATE [Suspect]
     Indication: ANGINA PECTORIS
     Dosage: ONE AND ONE-HALF TABLET DAILY PO
     Route: 048
     Dates: start: 20080701, end: 20081101
  2. ISOSORBIDE MONONITRATE [Suspect]
     Indication: PROPHYLAXIS
     Dosage: ONE AND ONE-HALF TABLET DAILY PO
     Route: 048
     Dates: start: 20080701, end: 20081101

REACTIONS (2)
  - DIZZINESS [None]
  - SYNCOPE [None]
